FAERS Safety Report 13001000 (Version 1)
Quarter: 2016Q4

REPORT INFORMATION
  Report Type: Spontaneous
  Country: NL (occurrence: NL)
  Receive Date: 20161206
  Receipt Date: 20161206
  Transmission Date: 20170207
  Serious: Yes (Other)
  Sender: FDA-Public Use
  Company Number: NL-CLINIGEN GROUP PLC/ CLINIGEN HEALTHCARE LTD-E2B_00001617

PATIENT
  Age: 12 Year
  Sex: Male
  Weight: 55 kg

DRUGS (6)
  1. ADRIAMYCIN [Concomitant]
     Active Substance: DOXORUBICIN HYDROCHLORIDE
     Dates: start: 19960609
  2. IFOSFAMIDE. [Concomitant]
     Active Substance: IFOSFAMIDE
     Route: 042
  3. MESNA. [Concomitant]
     Active Substance: MESNA
     Dates: start: 19960630
  4. ETHYOL [Suspect]
     Active Substance: AMIFOSTINE
     Indication: PROPHYLACTIC CHEMOTHERAPY
     Route: 042
     Dates: start: 19960709, end: 19960803
  5. VINCRISTINE [Concomitant]
     Active Substance: VINCRISTINE
     Dates: start: 19960709
  6. ACTINOMYCIN D [Concomitant]
     Active Substance: DACTINOMYCIN
     Dates: start: 19960709

REACTIONS (1)
  - Renal tubular disorder [Unknown]

NARRATIVE: CASE EVENT DATE: 19960805
